FAERS Safety Report 7652673-8 (Version None)
Quarter: 2011Q3

REPORT INFORMATION
  Report Type: 
  Country: None (occurrence: None)
  Receive Date: 20110803
  Receipt Date: 20110721
  Transmission Date: 20111222
  Serious: Yes (Hospitalization)
  Sender: FDA-Public Use
  Company Number: US-ELI_LILLY_AND_COMPANY-US201107006957

PATIENT
  Age: 58 Year
  Sex: Male

DRUGS (4)
  1. NAPROXEN [Concomitant]
     Dosage: UNK
  2. CYMBALTA [Suspect]
     Indication: FIBROMYALGIA
     Dosage: 30 MG, BID
  3. CYMBALTA [Suspect]
     Dosage: 60 MG, BID
     Dates: start: 20110621
  4. AMBIEN CR [Concomitant]
     Dosage: UNK

REACTIONS (2)
  - SKIN ODOUR ABNORMAL [None]
  - KNEE ARTHROPLASTY [None]
